FAERS Safety Report 23316202 (Version 4)
Quarter: 2024Q4

REPORT INFORMATION
  Report Type: Spontaneous
  Country: US (occurrence: US)
  Receive Date: 20231219
  Receipt Date: 20241017
  Transmission Date: 20250114
  Serious: No
  Sender: ROCHE
  Company Number: US-ROCHE-3353439

PATIENT
  Age: 55 Year
  Sex: Male

DRUGS (1)
  1. HEMLIBRA [Suspect]
     Active Substance: EMICIZUMAB-KXWH
     Indication: Factor VIII deficiency
     Dosage: STRENGTH- 60MG/ 0.4 ML?ONGOING: YES
     Route: 058
     Dates: start: 202210

REACTIONS (4)
  - Haemorrhage [Not Recovered/Not Resolved]
  - Pain [Unknown]
  - Haemorrhage [Unknown]
  - Arthralgia [Unknown]

NARRATIVE: CASE EVENT DATE: 20230922
